FAERS Safety Report 8060557-9 (Version None)
Quarter: 2012Q1

REPORT INFORMATION
  Report Type: 
  Country: None (occurrence: None)
  Receive Date: 20120120
  Receipt Date: 20120113
  Transmission Date: 20120608
  Serious: Yes (Other)
  Sender: FDA-Public Use
  Company Number: PHHY2012US003665

PATIENT

DRUGS (1)
  1. BUFFERIN [Suspect]
     Indication: MIGRAINE
     Dates: end: 20110501

REACTIONS (1)
  - MYOCARDIAL INFARCTION [None]
